FAERS Safety Report 4953016-0 (Version None)
Quarter: 2006Q1

REPORT INFORMATION
  Report Type: 
  Country: None (occurrence: None)
  Receive Date: 20060324
  Receipt Date: 20060221
  Transmission Date: 20060701
  Serious: Yes (Other)
  Sender: FDA-Public Use
  Company Number: JP-JPN-A200600701

PATIENT
  Age: 43 Year
  Sex: Female
  Weight: 49 kg

DRUGS (1)
  1. RELENZA [Suspect]
     Indication: INFLUENZA
     Dosage: 1U PER DAY
     Route: 055
     Dates: start: 20060128, end: 20060128

REACTIONS (2)
  - HYPOAESTHESIA ORAL [None]
  - PARALYSIS [None]
